FAERS Safety Report 7398050-9 (Version None)
Quarter: 2011Q2

REPORT INFORMATION
  Report Type: 
  Country: None (occurrence: None)
  Receive Date: 20110406
  Receipt Date: 20110323
  Transmission Date: 20111010
  Serious: Yes (Hospitalization)
  Sender: FDA-Public Use
  Company Number: US-JNJFOC-20100406995

PATIENT
  Sex: Female
  Weight: 19.5 kg

DRUGS (5)
  1. PREDNISONE [Concomitant]
  2. VALCYTE [Concomitant]
  3. REMICADE [Suspect]
     Indication: CROHN'S DISEASE
     Dosage: TOTAL 6 DOSES
     Route: 042
  4. MERCAPTOPURINE [Concomitant]
     Indication: CROHN'S DISEASE
  5. GANCICLOVIR [Concomitant]
     Route: 042

REACTIONS (2)
  - CYTOMEGALOVIRUS INFECTION [None]
  - CROHN'S DISEASE [None]
